FAERS Safety Report 9049856 (Version 2)
Quarter: 2013Q2

REPORT INFORMATION
  Report Type: Spontaneous
  Country: US (occurrence: US)
  Receive Date: 20130205
  Receipt Date: 20130520
  Transmission Date: 20140414
  Serious: Yes (Hospitalization)
  Sender: FDA-Public Use
  Company Number: US-ASTELLAS-2013US001091

PATIENT
  Age: 27 Year
  Sex: Male

DRUGS (1)
  1. PROGRAF [Suspect]
     Indication: LIVER TRANSPLANT
     Dosage: 2.5 MG, BID
     Route: 048
     Dates: start: 20121012

REACTIONS (5)
  - Treatment noncompliance [Unknown]
  - Liver transplant rejection [Unknown]
  - Drug level fluctuating [Unknown]
  - Fatigue [Unknown]
  - Pain [Unknown]
